FAERS Safety Report 8864644 (Version 1)
Quarter: 2012Q4

REPORT INFORMATION
  Report Type: 
  Country: US (occurrence: US)
  Receive Date: 20121024
  Receipt Date: 20121024
  Transmission Date: 20130627
  Serious: No
  Sender: FDA-Public Use
  Company Number: US-AMGEN-USASP2011068214

PATIENT
  Age: 61 Year
  Sex: Male
  Weight: 127 kg

DRUGS (8)
  1. ENBREL [Suspect]
     Indication: PRODUCT USED FOR UNKNOWN INDICATION
     Dosage: 50 mg, qwk
     Route: 058
  2. JANUVIA [Concomitant]
     Dosage: 100 mg, UNK
     Route: 048
  3. LOVAZA [Concomitant]
     Dosage: UNK
     Route: 048
  4. CRESTOR [Concomitant]
     Dosage: 10 mg, UNK
     Route: 048
  5. ALLOPURINOL [Concomitant]
     Dosage: 100 mg, UNK
     Route: 048
  6. CO Q-10 [Concomitant]
     Dosage: UNK
     Route: 048
  7. ALEVE [Concomitant]
     Dosage: 220 mg, UNK
     Route: 048
  8. SORIATANE [Concomitant]
     Dosage: 10 mg, UNK
     Route: 048

REACTIONS (1)
  - Renal cyst [Unknown]
